FAERS Safety Report 6736211-X (Version None)
Quarter: 2010Q2

REPORT INFORMATION
  Report Type: 
  Country: None (occurrence: None)
  Receive Date: 20100521
  Receipt Date: 20100512
  Transmission Date: 20101027
  Serious: Yes (Other)
  Sender: FDA-Public Use
  Company Number: US-ABBOTT-10P-163-0630382-00

PATIENT
  Sex: Male
  Weight: 127.12 kg

DRUGS (5)
  1. SIMCOR [Suspect]
     Indication: BLOOD CHOLESTEROL INCREASED
     Dosage: 2 - 500/20MG TABS DAILY
     Route: 048
     Dates: start: 20100127, end: 20100226
  2. SIMCOR [Suspect]
     Indication: HYPERLIPIDAEMIA
     Dosage: 2 - 500/20MG TABS DAILY
     Route: 048
  3. LEVOTHYROXINE SODIUM [Concomitant]
     Indication: DRUG USE FOR UNKNOWN INDICATION
  4. DICLOFENAC [Concomitant]
     Indication: DRUG USE FOR UNKNOWN INDICATION
  5. SIMVASTATIN [Concomitant]
     Indication: DRUG USE FOR UNKNOWN INDICATION

REACTIONS (6)
  - ABDOMINAL DISCOMFORT [None]
  - ERYTHEMA [None]
  - FEELING HOT [None]
  - FLUSHING [None]
  - MEDICATION ERROR [None]
  - THROMBOPHLEBITIS SUPERFICIAL [None]
